FAERS Safety Report 8011184-0 (Version None)
Quarter: 2011Q4

REPORT INFORMATION
  Report Type: 
  Country: None (occurrence: None)
  Receive Date: 20111228
  Receipt Date: 20111219
  Transmission Date: 20120403
  Serious: Yes (Other)
  Sender: FDA-Public Use
  Company Number: US-BAYER-201028637NA

PATIENT
  Age: 35 Year
  Sex: Female
  Weight: 48.073 kg

DRUGS (2)
  1. YASMIN [Suspect]
     Indication: CONTRACEPTION
     Dosage: UNK
     Route: 048
     Dates: start: 20030501, end: 20090401
  2. DROSPIRENONE AND ETHINYL ESTRADIOL [Suspect]
     Indication: CONTRACEPTION
     Dosage: UNK
     Dates: start: 20030501, end: 20090401

REACTIONS (4)
  - CHOLECYSTITIS CHRONIC [None]
  - HEPATIC CYST [None]
  - HEPATIC NEOPLASM [None]
  - GALLBLADDER DISORDER [None]
